FAERS Safety Report 17180790 (Version 1)
Quarter: 2019Q4

REPORT INFORMATION
  Report Type: Spontaneous
  Country: AT (occurrence: AT)
  Receive Date: 20191219
  Receipt Date: 20191219
  Transmission Date: 20200122
  Serious: Yes (Hospitalization)
  Sender: FDA-Public Use
  Company Number: AT-MYLANLABS-2019M1073669

PATIENT
  Age: 72 Year
  Sex: Male
  Weight: 76 kg

DRUGS (59)
  1. FOLSAN [Concomitant]
     Active Substance: FOLIC ACID
     Dosage: UNK
  2. XYLOCAIN                           /00033401/ [Concomitant]
     Active Substance: LIDOCAINE
  3. KAMILLOSAN                         /00512601/ [Concomitant]
  4. XANOR [Concomitant]
     Active Substance: ALPRAZOLAM
  5. UROMONT [Concomitant]
  6. KAMILLOSAN                         /01646702/ [Concomitant]
  7. SEROQUEL [Concomitant]
     Active Substance: QUETIAPINE FUMARATE
     Dosage: UNK
  8. PSYCHOPAX [Concomitant]
     Active Substance: DIAZEPAM
  9. LYRICA [Concomitant]
     Active Substance: PREGABALIN
  10. VIBRAMYCIN                         /00055702/ [Concomitant]
     Dosage: 400 MILLIGRAM DAILY; 200MG 2X1 FOR 5 DAYS
     Dates: start: 20170619
  11. BENZALKONIUM CHLORIDE W/DEXPANTHENOL/RETINOL [Concomitant]
  12. AUGMENTIN [Concomitant]
     Active Substance: AMOXICILLIN\CLAVULANATE POTASSIUM
  13. NEUROBION [Concomitant]
     Active Substance: CYANOCOBALAMIN\PYRIDOXINE\THIAMINE
  14. FINASTERID [Concomitant]
     Active Substance: FINASTERIDE
  15. DOLPASSE                           /01164401/ [Concomitant]
  16. CIPROFLOXACIN. [Suspect]
     Active Substance: CIPROFLOXACIN
     Indication: PRODUCT USED FOR UNKNOWN INDICATION
     Dosage: CA 40-50 MAL CIPROFLOXACIN 2MAL 500
     Route: 048
     Dates: start: 20170107
  17. CIPROFLOXACIN. [Suspect]
     Active Substance: CIPROFLOXACIN
     Dosage: UNK
     Dates: start: 20170107
  18. TRITTICO [Concomitant]
     Active Substance: TRAZODONE HYDROCHLORIDE
     Dosage: UNK
  19. MEXALEN [Concomitant]
     Active Substance: ACETAMINOPHEN
  20. REPARIL                            /00337201/ [Concomitant]
  21. HYDAL [Concomitant]
     Active Substance: HYDROMORPHONE HYDROCHLORIDE
  22. FLUCONAZOL [Concomitant]
     Active Substance: FLUCONAZOLE
  23. LEXOTANIL [Concomitant]
     Active Substance: BROMAZEPAM
  24. LIDOCAIN                           /00033402/ [Concomitant]
     Active Substance: LIDOCAINE
  25. DULOXETIN KRKA [Concomitant]
     Dosage: UNK
  26. AGAFFIN [Concomitant]
  27. PROSTA URGENIN [Concomitant]
     Active Substance: SERENOA REPENS WHOLE
  28. EZETIMIBE. [Concomitant]
     Active Substance: EZETIMIBE
  29. AMPHO-MORONAL [Concomitant]
     Active Substance: AMPHOTERICIN B
  30. ARTERGIN [Concomitant]
  31. HADENSA [Concomitant]
  32. FURADANTIN [Concomitant]
     Active Substance: NITROFURANTOIN
  33. SEROXAT [Concomitant]
     Active Substance: PAROXETINE HYDROCHLORIDE
  34. HALCION [Concomitant]
     Active Substance: TRIAZOLAM
  35. COENZYM Q10 [Concomitant]
  36. RENITEC PLUS [Concomitant]
  37. SCHERIPROCT                        /00212301/ [Concomitant]
  38. URIVESC [Concomitant]
     Active Substance: TROSPIUM CHLORIDE
     Dates: start: 20170612
  39. PREDNISOLON                        /00016201/ [Concomitant]
     Active Substance: PREDNISOLONE
     Route: 048
     Dates: start: 20180427, end: 20180430
  40. RHINOSPRAY [Concomitant]
     Active Substance: TRAMAZOLINE HYDROCHLORIDE
  41. MAGNESIUM [Concomitant]
     Active Substance: MAGNESIUM
  42. URALYT                             /01779901/ [Concomitant]
  43. OMEGA 3                            /01334101/ [Concomitant]
     Active Substance: OMEGA-3 FATTY ACIDS
  44. NOVALGIN (METAMIZOLE SODIUM) [Concomitant]
     Active Substance: METAMIZOLE SODIUM
  45. CRESTON [Concomitant]
     Active Substance: ROSUVASTATIN CALCIUM
     Indication: CEREBRAL INFARCTION
     Dosage: 10 MILLIGRAM DAILY; 10 MG, 0-0-1-0
  46. MARCUMAR [Concomitant]
     Active Substance: PHENPROCOUMON
  47. CYMBALTA [Concomitant]
     Active Substance: DULOXETINE HYDROCHLORIDE
  48. TARGIN [Concomitant]
     Active Substance: NALOXONE HYDROCHLORIDE\OXYCODONE HYDROCHLORIDE
  49. CIPROXIN                           /00697201/ [Suspect]
     Active Substance: CIPROFLOXACIN
     Indication: URETHRITIS
     Dosage: 500 MG, 2X1 FOR TEN DAYS
     Route: 048
     Dates: start: 20170316
  50. CIPROXIN                           /00697201/ [Suspect]
     Active Substance: CIPROFLOXACIN
     Dosage: 1000 MILLIGRAM DAILY; 1-0-1 FOR 2 WEEKS
     Route: 048
     Dates: start: 20170825
  51. NAPROXEN. [Concomitant]
     Active Substance: NAPROXEN
     Dosage: 1000 MILLIGRAM DAILY; 500MG, 1-0-1 FOR 5 DAYS
  52. CRESTON [Concomitant]
     Active Substance: ROSUVASTATIN CALCIUM
     Dosage: 20 MILLIGRAM DAILY; 10-20 MG; 10MG 0-0-1-0, 20 MG, 0-1-0-0 (06-MAR-2017)
     Route: 048
     Dates: start: 20141101, end: 20181006
  53. MOVICOL [Concomitant]
     Active Substance: POLYETHYLENE GLYCOL 3350\POTASSIUM CHLORIDE\SODIUM BICARBONATE\SODIUM CHLORIDE
  54. RENITEC                            /00574902/ [Concomitant]
     Active Substance: ENALAPRIL MALEATE
  55. CAL OS D [Concomitant]
  56. ADVANTAN [Concomitant]
     Active Substance: METHYLPREDNISOLONE ACEPONATE
  57. VESICARE [Concomitant]
     Active Substance: SOLIFENACIN SUCCINATE
  58. POLSTIMOL [Concomitant]
  59. TRAMAL [Concomitant]
     Active Substance: TRAMADOL

REACTIONS (5)
  - Myopathy [Not Recovered/Not Resolved]
  - Myalgia [Recovered/Resolved with Sequelae]
  - Tendon pain [Recovered/Resolved with Sequelae]
  - Enthesopathy [Not Recovered/Not Resolved]
  - Adverse reaction [Recovered/Resolved with Sequelae]

NARRATIVE: CASE EVENT DATE: 2017
